FAERS Safety Report 7308722-X (Version None)
Quarter: 2011Q1

REPORT INFORMATION
  Report Type: 
  Country: None (occurrence: None)
  Receive Date: 20110223
  Receipt Date: 20110211
  Transmission Date: 20110831
  Serious: Yes (Hospitalization)
  Sender: FDA-Public Use
  Company Number: PHHY2011US12084

PATIENT
  Age: 86 Year
  Sex: Female

DRUGS (1)
  1. TEKTURNA [Suspect]
     Dosage: 300 MG, QD
     Route: 048

REACTIONS (2)
  - ESSENTIAL TREMOR [None]
  - BLOOD PRESSURE INCREASED [None]
